FAERS Safety Report 14958773 (Version 1)
Quarter: 2018Q2

REPORT INFORMATION
  Report Type: Spontaneous
  Country: US (occurrence: US)
  Receive Date: 20180510
  Receipt Date: 20180510
  Transmission Date: 20180711
  Serious: Yes (Disabling)
  Sender: FDA-Public Use
  Company Number: None

PATIENT
  Age: 46 Year
  Sex: Female
  Weight: 47.7 kg

DRUGS (1)
  1. SUMATRIPTAN SUCH 100 MG TABLET [Suspect]
     Active Substance: SUMATRIPTAN SUCCINATE
     Indication: HEADACHE
     Dosage: ?          QUANTITY:9 TABLET(S);OTHER FREQUENCY:1 EVERY 24 HOURS;OTHER ROUTE:ORALLY?
     Route: 048
     Dates: start: 20180510, end: 20180510

REACTIONS (2)
  - Feeling abnormal [None]
  - Confusional state [None]

NARRATIVE: CASE EVENT DATE: 20180510
